FAERS Safety Report 7368857-2 (Version None)
Quarter: 2011Q1

REPORT INFORMATION
  Report Type: 
  Country: None (occurrence: None)
  Receive Date: 20110308
  Receipt Date: 20110302
  Transmission Date: 20110831
  Serious: Yes (Death)
  Sender: FDA-Public Use
  Company Number: 2011SP009637

PATIENT
  Age: 56 Year
  Sex: Male

DRUGS (1)
  1. POSACONAZOLE [Suspect]
     Indication: BRONCHOPULMONARY ASPERGILLOSIS

REACTIONS (3)
  - DISEASE PROGRESSION [None]
  - ASPERGILLOSIS [None]
  - DRUG INEFFECTIVE [None]
